FAERS Safety Report 10270645 (Version 8)
Quarter: 2014Q4

REPORT INFORMATION
  Report Type: Report from Study
  Country: US (occurrence: US)
  Receive Date: 20140701
  Receipt Date: 20141016
  Transmission Date: 20150528
  Serious: Yes (Hospitalization, Other)
  Sender: FDA-Public Use
  Company Number: US-ACTELION-A-NJ2013-92097

PATIENT
  Age: 57 Year
  Sex: Male

DRUGS (4)
  1. TRACLEER [Suspect]
     Active Substance: BOSENTAN\BOSENTAN MONOHYDRATE
     Indication: PULMONARY HYPERTENSION
     Dosage: UNK
     Route: 048
  2. VELETRI [Suspect]
     Active Substance: EPOPROSTENOL
     Indication: PULMONARY ARTERIAL HYPERTENSION
     Dosage: 48.5 NG/KG, PER MIN
     Route: 042
     Dates: start: 20101207
  3. COUMADIN [Concomitant]
     Active Substance: WARFARIN SODIUM
  4. VELETRI [Suspect]
     Active Substance: EPOPROSTENOL
     Dosage: 57 NG/KG, PER MIN
     Route: 042

REACTIONS (18)
  - Urinary incontinence [Recovered/Resolved]
  - Presyncope [Recovered/Resolved]
  - Thrombosis in device [Unknown]
  - Medical device complication [Unknown]
  - Fluid retention [Unknown]
  - Dehydration [Unknown]
  - Pneumonia [Unknown]
  - Nausea [Recovered/Resolved]
  - Abdominal distension [Unknown]
  - Lip injury [Unknown]
  - Device occlusion [Recovered/Resolved]
  - Device infusion issue [Recovered/Resolved]
  - Seizure [Recovered/Resolved]
  - Thrombosis [Unknown]
  - Syncope [Recovered/Resolved]
  - Loss of consciousness [Unknown]
  - Drug dose omission [Recovered/Resolved]
  - Dizziness [Recovered/Resolved]

NARRATIVE: CASE EVENT DATE: 20140521
